FAERS Safety Report 9529986 (Version 1)
Quarter: 2013Q3

REPORT INFORMATION
  Report Type: Report from Study
  Country: FR (occurrence: FR)
  Receive Date: 20130917
  Receipt Date: 20130917
  Transmission Date: 20140515
  Serious: Yes (Other)
  Sender: FDA-Public Use
  Company Number: PHHY2013FR099598

PATIENT
  Sex: Male

DRUGS (2)
  1. STI571 [Suspect]
     Dosage: 400 MG, PER DAY
     Dates: start: 20110620
  2. TASIGNA [Suspect]
     Dosage: 800 MG, PER DAY

REACTIONS (5)
  - Coronary artery disease [Unknown]
  - Dyspnoea exertional [Unknown]
  - Lacrimation increased [Unknown]
  - Eyelid oedema [Unknown]
  - Dizziness [Unknown]
